FAERS Safety Report 14531243 (Version 2)
Quarter: 2018Q3

REPORT INFORMATION
  Report Type: Spontaneous
  Country: DE (occurrence: DE)
  Receive Date: 20180214
  Receipt Date: 20180713
  Transmission Date: 20181010
  Serious: Yes (Life-Threatening, Other)
  Sender: FDA-Public Use
  Company Number: DE-MYLANLABS-2018M1009246

PATIENT
  Age: 52 Year
  Sex: Male

DRUGS (12)
  1. BUPIVACAIN [Suspect]
     Active Substance: BUPIVACAINE
     Indication: GENERAL ANAESTHESIA
     Dosage: UNK
     Route: 065
  2. ATROPINE. [Suspect]
     Active Substance: ATROPINE
     Indication: PRODUCT USED FOR UNKNOWN INDICATION
     Dosage: UNK
     Route: 065
  3. SUCCINYLCHOLINE                    /00057701/ [Suspect]
     Active Substance: SUCCINYLCHOLINE
     Indication: PRODUCT USED FOR UNKNOWN INDICATION
     Dosage: UNK
     Route: 065
  4. ISOFLURAN BAXTER [Suspect]
     Active Substance: ISOFLURANE
     Indication: GENERAL ANAESTHESIA
     Dosage: UNK
     Route: 055
  5. PANCURONIUM BROMIDE. [Suspect]
     Active Substance: PANCURONIUM BROMIDE
     Indication: GENERAL ANAESTHESIA
     Dosage: UNK
     Route: 065
  6. HYPNOMIDATE [Suspect]
     Active Substance: ETOMIDATE SULFATE
     Indication: ANAESTHESIA
     Dosage: UNK
     Route: 065
  7. FENTANYL. [Suspect]
     Active Substance: FENTANYL
     Indication: GENERAL ANAESTHESIA
     Dosage: UNK
     Route: 065
  8. ISOFLURAN BAXTER [Suspect]
     Active Substance: ISOFLURANE
     Indication: ANAESTHESIA
  9. FENTANYL. [Suspect]
     Active Substance: FENTANYL
     Indication: ANAESTHESIA
  10. ETOMIDATE. [Suspect]
     Active Substance: ETOMIDATE
     Indication: GENERAL ANAESTHESIA
     Dosage: UNK
     Route: 065
  11. PANCURONIUM BROMIDE. [Suspect]
     Active Substance: PANCURONIUM BROMIDE
     Indication: ANAESTHESIA
  12. BUPIVACAINE. [Suspect]
     Active Substance: BUPIVACAINE
     Indication: ANAESTHESIA
     Dosage: UNK

REACTIONS (11)
  - Coma [Recovering/Resolving]
  - Hyperthermia [Recovered/Resolved]
  - Platelet count decreased [Recovering/Resolving]
  - Blood creatine phosphokinase increased [Recovered/Resolved]
  - Renal failure [Recovering/Resolving]
  - Lymphocyte count decreased [Recovering/Resolving]
  - Muscular weakness [Recovering/Resolving]
  - Rhabdomyolysis [Unknown]
  - Oxygen saturation decreased [Recovering/Resolving]
  - Multiple organ dysfunction syndrome [Recovering/Resolving]
  - Septic shock [Unknown]
